FAERS Safety Report 20539737 (Version 1)
Quarter: 2022Q1

REPORT INFORMATION
  Report Type: Spontaneous
  Country: CH (occurrence: CH)
  Receive Date: 20220302
  Receipt Date: 20220302
  Transmission Date: 20220423
  Serious: Yes (Hospitalization, Other)
  Sender: FDA-Public Use
  Company Number: CH-JNJFOC-20211060263

PATIENT
  Age: 50 Year
  Sex: Male

DRUGS (8)
  1. TRABECTEDIN [Suspect]
     Active Substance: TRABECTEDIN
     Indication: Sarcoma
     Route: 041
     Dates: start: 20210721, end: 20210721
  2. TRABECTEDIN [Suspect]
     Active Substance: TRABECTEDIN
     Dosage: 2ND CYCLE
     Route: 041
     Dates: start: 20210812, end: 20210812
  3. TRABECTEDIN [Suspect]
     Active Substance: TRABECTEDIN
     Route: 041
     Dates: start: 20210902, end: 20210902
  4. APIXABAN [Concomitant]
     Active Substance: APIXABAN
     Indication: Product used for unknown indication
     Route: 065
  5. ESOMEPRAZOLE [Concomitant]
     Active Substance: ESOMEPRAZOLE
     Indication: Product used for unknown indication
     Route: 065
  6. ONDANSETRON [Concomitant]
     Active Substance: ONDANSETRON
     Indication: Product used for unknown indication
     Route: 065
  7. LOPERAMIDE HYDROCHLORIDE [Concomitant]
     Active Substance: LOPERAMIDE HYDROCHLORIDE
     Indication: Product used for unknown indication
     Route: 065
  8. TRAMADOL [Concomitant]
     Active Substance: TRAMADOL
     Indication: Product used for unknown indication
     Route: 065

REACTIONS (4)
  - Rhabdomyolysis [Unknown]
  - Pancytopenia [Unknown]
  - Pyrexia [Unknown]
  - Liver function test abnormal [Unknown]

NARRATIVE: CASE EVENT DATE: 20210911
